FAERS Safety Report 16346202 (Version 1)
Quarter: 2019Q2

REPORT INFORMATION
  Report Type: Spontaneous
  Country: CA (occurrence: CA)
  Receive Date: 20190523
  Receipt Date: 20190523
  Transmission Date: 20190711
  Serious: Yes (Disabling, Other)
  Sender: FDA-Public Use
  Company Number: CA-AUROBINDO-AUR-APL-2019-027614

PATIENT

DRUGS (3)
  1. AZITHROMYCIN ORAL SUSPENSION [Suspect]
     Active Substance: AZITHROMYCIN
     Indication: EAR INFECTION
     Dosage: 90 MILLIGRAM, DAILY
     Route: 065
  2. AZITHROMYCIN ORAL SUSPENSION [Suspect]
     Active Substance: AZITHROMYCIN
     Dosage: 180 MILLIGRAM, DAILY
     Route: 065
  3. AZITHROMYCIN ANHYDROUS. [Suspect]
     Active Substance: AZITHROMYCIN ANHYDROUS
     Indication: EAR INFECTION
     Dosage: 200 MILLIGRAM, DAILY

REACTIONS (4)
  - Paraesthesia [Unknown]
  - Deafness [Unknown]
  - Tinnitus [Unknown]
  - Stress [Unknown]
